FAERS Safety Report 18072482 (Version 1)
Quarter: 2020Q3

REPORT INFORMATION
  Report Type: Report from Study
  Country: CA (occurrence: CA)
  Receive Date: 20200727
  Receipt Date: 20200727
  Transmission Date: 20201103
  Serious: Yes (Other)
  Sender: FDA-Public Use
  Company Number: CA-ACCORD-192570

PATIENT
  Age: 50 Year
  Sex: Female

DRUGS (12)
  1. KENALOG [Concomitant]
     Active Substance: TRIAMCINOLONE ACETONIDE
     Indication: PRURITUS
     Route: 030
  2. CIPRALEX [Concomitant]
     Active Substance: ESCITALOPRAM OXALATE
     Indication: DEPRESSION
     Dosage: 1 EVERY 1 DAYS
     Route: 048
  3. METHOTREXATE. [Suspect]
     Active Substance: METHOTREXATE
     Indication: PRODUCT USED FOR UNKNOWN INDICATION
  4. CICLOSPORIN [Suspect]
     Active Substance: CYCLOSPORINE
     Indication: PRODUCT USED FOR UNKNOWN INDICATION
     Route: 065
  5. PREDNISONE. [Concomitant]
     Active Substance: PREDNISONE
     Indication: ECZEMA
     Dosage: 1 EVERY 1 DAYS
     Route: 048
  6. SYNTHROID [Concomitant]
     Active Substance: LEVOTHYROXINE SODIUM
     Indication: HYPOTHYROIDISM
     Dosage: 1 EVERY 1 DAYS
     Route: 048
  7. BETAMETHASONE. [Concomitant]
     Active Substance: BETAMETHASONE
     Indication: ECZEMA
     Dosage: 2 EVERY 1 DAYS
     Route: 061
  8. OMALIZUMAB. [Suspect]
     Active Substance: OMALIZUMAB
     Indication: ECZEMA
     Dosage: CYCLICA
  9. HYDROXYZINE [Concomitant]
     Active Substance: HYDROXYZINE HYDROCHLORIDE
     Indication: ECZEMA
     Dosage: 4 EVERY 1 DAYS
     Route: 048
  10. ERYTHROMYCIN. [Concomitant]
     Active Substance: ERYTHROMYCIN
     Indication: ECZEMA
     Route: 048
  11. ZOPICLONE [Suspect]
     Active Substance: ZOPICLONE
     Indication: INSOMNIA
     Dosage: 1 EVERY 1 DAYS
     Route: 048
  12. CETIRIZINE HYDROCHLORIDE. [Concomitant]
     Active Substance: CETIRIZINE HYDROCHLORIDE
     Indication: ECZEMA
     Dosage: 1 EVERY 1 DAYS
     Route: 048

REACTIONS (11)
  - Chills [Unknown]
  - Therapeutic response unexpected [Unknown]
  - Dyspnoea [Unknown]
  - Gait disturbance [Unknown]
  - Pelvic fracture [Unknown]
  - Oropharyngeal pain [Unknown]
  - Drug hypersensitivity [Unknown]
  - Fall [Unknown]
  - Hypersensitivity [Unknown]
  - Nasal congestion [Unknown]
  - Pyrexia [Unknown]
